FAERS Safety Report 15168609 (Version 1)
Quarter: 2018Q3

REPORT INFORMATION
  Report Type: Report from Study
  Country: US (occurrence: US)
  Receive Date: 20180719
  Receipt Date: 20180719
  Transmission Date: 20181010
  Serious: No
  Sender: FDA-Public Use
  Company Number: US-SHIRE-US201825590

PATIENT
  Sex: Female
  Weight: 56.46 kg

DRUGS (1)
  1. GATTEX [Suspect]
     Active Substance: TEDUGLUTIDE\WATER
     Indication: SHORT-BOWEL SYNDROME
     Dosage: 0.27 ML, 1X/DAY:QD
     Route: 058
     Dates: start: 20160705

REACTIONS (2)
  - Device breakage [Unknown]
  - Cough [Unknown]
